FAERS Safety Report 16360817 (Version 1)
Quarter: 2019Q2

REPORT INFORMATION
  Report Type: Spontaneous
  Country: US (occurrence: US)
  Receive Date: 20190419
  Receipt Date: 20190419
  Transmission Date: 20190711
  Serious: No
  Sender: FDA-Public Use
  Company Number: None

PATIENT
  Sex: Male

DRUGS (1)
  1. ERTAPENEM 1GM AUROMEDICS PHARMA [Suspect]
     Active Substance: ERTAPENEM SODIUM
     Indication: IMPAIRED HEALING
     Route: 042
     Dates: start: 20190404, end: 201904

REACTIONS (2)
  - Rash [None]
  - Hypersensitivity [None]
